FAERS Safety Report 6515545-8 (Version None)
Quarter: 2009Q4

REPORT INFORMATION
  Report Type: 
  Country: None (occurrence: None)
  Receive Date: 20091223
  Receipt Date: 20091214
  Transmission Date: 20100525
  Serious: Yes (Life-Threatening, Hospitalization, Other)
  Sender: FDA-Public Use
  Company Number: US-JNJFOC-20091000184

PATIENT
  Sex: Female
  Weight: 99.79 kg

DRUGS (3)
  1. REMICADE [Suspect]
     Indication: PSORIATIC ARTHROPATHY
     Route: 042
  2. REMICADE [Suspect]
     Indication: PSORIASIS
     Route: 042
  3. CYTOXAN [Concomitant]
     Indication: VASCULITIS

REACTIONS (2)
  - METASTASES TO LYMPH NODES [None]
  - VULVAL CANCER [None]
